FAERS Safety Report 5731962-8 (Version None)
Quarter: 2008Q2

REPORT INFORMATION
  Report Type: 
  Country: None (occurrence: None)
  Receive Date: 20080508
  Receipt Date: 20080428
  Transmission Date: 20081010
  Serious: Yes (Other)
  Sender: FDA-Public Use
  Company Number: DE-BRISTOL-MYERS SQUIBB COMPANY-14067516

PATIENT
  Age: 68 Year
  Sex: Male

DRUGS (8)
  1. ENDOXAN [Suspect]
     Indication: CHRONIC LYMPHOCYTIC LEUKAEMIA
     Dosage: 1ST CYCLE-19SEP05-21SEP-05,500 MG, IV.2ND CYCLE-25OCT05 TO 27OCT05, 500 MG, IV AS NEEDED
     Route: 042
     Dates: start: 20050919, end: 20051027
  2. FLUDARA [Suspect]
     Indication: CHRONIC LYMPHOCYTIC LEUKAEMIA
     Dosage: 1ST CYCLE-19SEP05-21SEP05, 50MG, IV. 2ND CYCLE-25OCT05 TO 27OCT05, 500 MG, IV AS NEEDED.
     Route: 042
     Dates: start: 20050919, end: 20051027
  3. MABTHERA [Suspect]
     Indication: CHRONIC LYMPHOCYTIC LEUKAEMIA
     Dosage: 1ST CYCLE 21SEP05-21SEP05, 2ND CYCLE FROM 25OCT05 TO 27OCT05.
     Route: 065
     Dates: start: 20050921, end: 20050921
  4. ALLOPURINOL [Concomitant]
     Dates: start: 20050920, end: 20051027
  5. CLEMASTINE FUMARATE [Concomitant]
     Dates: start: 20050921, end: 20051025
  6. SOLU-DECORTIN-H [Concomitant]
     Dates: start: 20050919, end: 20051027
  7. CIMETIDINE [Concomitant]
     Dates: start: 20051025, end: 20051025
  8. SODIUM BICARBONATE [Concomitant]
     Dates: start: 20050920, end: 20050921

REACTIONS (2)
  - INTERSTITIAL LUNG DISEASE [None]
  - RESPIRATORY FAILURE [None]
